FAERS Safety Report 17985592 (Version 4)
Quarter: 2020Q4

REPORT INFORMATION
  Report Type: Report from Study
  Country: FR (occurrence: FR)
  Receive Date: 20200706
  Receipt Date: 20201229
  Transmission Date: 20210113
  Serious: Yes (Hospitalization, Other)
  Sender: FDA-Public Use
  Company Number: FR-TAKEDA-2020TUS029257

PATIENT
  Age: 53 Year
  Sex: Female

DRUGS (1)
  1. PONATINIB [Suspect]
     Active Substance: PONATINIB
     Indication: CHRONIC MYELOID LEUKAEMIA
     Dosage: 45 MILLIGRAM, QD
     Route: 048
     Dates: start: 2019, end: 202005

REACTIONS (2)
  - Hepatotoxicity [Recovering/Resolving]
  - Chronic myeloid leukaemia recurrent [Recovered/Resolved]

NARRATIVE: CASE EVENT DATE: 202003
